FAERS Safety Report 8055497-5 (Version None)
Quarter: 2012Q1

REPORT INFORMATION
  Report Type: 
  Country: None (occurrence: None)
  Receive Date: 20120119
  Receipt Date: 20120110
  Transmission Date: 20120608
  Serious: Yes (Other)
  Sender: FDA-Public Use
  Company Number: JP-JNJFOC-20111002603

PATIENT
  Age: 82 Year
  Sex: Male

DRUGS (2)
  1. GASMOTIN [Concomitant]
     Indication: PRODUCT USED FOR UNKNOWN INDICATION
     Dosage: ONE PER DAY
     Route: 048
     Dates: start: 20110909, end: 20110922
  2. TRAMADOL HYDROCHLORIDE/ACETAMINOPHEN [Suspect]
     Indication: PRODUCT USED FOR UNKNOWN INDICATION
     Dosage: ONE PER DAY
     Route: 048
     Dates: start: 20110909, end: 20110922

REACTIONS (1)
  - LIVER FUNCTION TEST ABNORMAL [None]
